FAERS Safety Report 24882680 (Version 4)
Quarter: 2025Q1

REPORT INFORMATION
  Report Type: Report from Study
  Country: US (occurrence: US)
  Receive Date: 20250124
  Receipt Date: 20250318
  Transmission Date: 20250409
  Serious: Yes (Hospitalization, Other)
  Sender: BAYER HEALTHCARE PHARMACEUTICALS INC.
  Company Number: US-BAYER-2024A182012

PATIENT
  Age: 84 Year
  Sex: Female
  Weight: 92.517 kg

DRUGS (19)
  1. ADEMPAS [Suspect]
     Active Substance: RIOCIGUAT
     Indication: Pulmonary arterial hypertension
     Dates: start: 20241119
  2. ADEMPAS [Suspect]
     Active Substance: RIOCIGUAT
     Indication: Pulmonary arterial hypertension
     Dosage: 1 MG, TID
     Route: 048
  3. ADEMPAS [Suspect]
     Active Substance: RIOCIGUAT
     Indication: Pulmonary arterial hypertension
     Dosage: 1.5 MG, TID
     Route: 048
  4. ADEMPAS [Suspect]
     Active Substance: RIOCIGUAT
     Indication: Pulmonary arterial hypertension
     Dosage: 2 MG, TID
     Route: 048
  5. ADEMPAS [Suspect]
     Active Substance: RIOCIGUAT
     Indication: Pulmonary arterial hypertension
     Dosage: 2.5 MG, TID
     Route: 048
     Dates: end: 20250220
  6. ATORVASTATIN CALCIUM [Concomitant]
     Active Substance: ATORVASTATIN CALCIUM
  7. DICYCLOMINE HYDROCHLORIDE [Concomitant]
     Active Substance: DICYCLOMINE HYDROCHLORIDE
  8. VITAMIN B12 [Concomitant]
     Active Substance: CYANOCOBALAMIN
  9. FUROSEMIDE [Concomitant]
     Active Substance: FUROSEMIDE
  10. GEMTESA [Concomitant]
     Active Substance: VIBEGRON
  11. VITAMIN D3 [Concomitant]
     Active Substance: CHOLECALCIFEROL
  12. SYNTHROID [Concomitant]
     Active Substance: LEVOTHYROXINE SODIUM
  13. ELIQUIS [Concomitant]
     Active Substance: APIXABAN
  14. METOPROLOL SUCCINATE [Concomitant]
     Active Substance: METOPROLOL SUCCINATE
  15. NITROFURANTOIN [Concomitant]
     Active Substance: NITROFURANTOIN
  16. VITAMINS [Concomitant]
     Active Substance: VITAMINS
  17. DEXLANSOPRAZOLE [Concomitant]
     Active Substance: DEXLANSOPRAZOLE
  18. IMODIUM [Concomitant]
     Active Substance: LOPERAMIDE HYDROCHLORIDE
  19. FIBER THERAPY (CALCIUM POLYCARBOPHIL) [Concomitant]
     Active Substance: CALCIUM POLYCARBOPHIL

REACTIONS (21)
  - Oxygen saturation decreased [Recovering/Resolving]
  - Small intestinal obstruction [None]
  - Intestinal obstruction [None]
  - Intestinal obstruction [None]
  - Weight decreased [None]
  - Vomiting [Not Recovered/Not Resolved]
  - Abdominal pain [None]
  - Diarrhoea [Not Recovered/Not Resolved]
  - Faeces soft [None]
  - Anal incontinence [None]
  - Pollakiuria [None]
  - Weight increased [None]
  - Vomiting [None]
  - Oxygen saturation decreased [None]
  - Abdominal pain upper [None]
  - Peripheral swelling [Not Recovered/Not Resolved]
  - Oedema [None]
  - Feeding disorder [None]
  - Epistaxis [None]
  - Joint swelling [None]
  - Dyspepsia [None]

NARRATIVE: CASE EVENT DATE: 20250101
